FAERS Safety Report 13121181 (Version 2)
Quarter: 2017Q1

REPORT INFORMATION
  Report Type: Spontaneous
  Country: US (occurrence: US)
  Receive Date: 20170117
  Receipt Date: 20170330
  Transmission Date: 20170428
  Serious: Yes (Death)
  Sender: FDA-Public Use
  Company Number: US-INCYTE CORPORATION-2017IN000248

PATIENT
  Age: 69 Year
  Sex: Female
  Weight: 94.33 kg

DRUGS (2)
  1. METFORMIN [Concomitant]
     Active Substance: METFORMIN HYDROCHLORIDE
     Indication: PRODUCT USED FOR UNKNOWN INDICATION
  2. JAKAFI [Suspect]
     Active Substance: RUXOLITINIB
     Indication: MYELOFIBROSIS
     Dosage: 20 MG, QD (DAILY)
     Route: 048
     Dates: start: 201604, end: 20161231

REACTIONS (2)
  - Cardiac arrest [Fatal]
  - Respiratory failure [Fatal]

NARRATIVE: CASE EVENT DATE: 20161231
